FAERS Safety Report 8797361 (Version 1)
Quarter: 2012Q4

REPORT INFORMATION
  Report Type: 
  Country: US (occurrence: US)
  Receive Date: 20120920
  Receipt Date: 20120920
  Transmission Date: 20130627
  Serious: No
  Sender: FDA-Public Use
  Company Number: US-PFIZER INC-2012229424

PATIENT
  Age: 2 Year
  Sex: Female
  Weight: 9.98 kg

DRUGS (1)
  1. GENOTROPIN [Suspect]
     Indication: TURNER^S SYNDROME
     Dosage: 0.5 mg, 1x/day
     Route: 058
     Dates: start: 20120814

REACTIONS (2)
  - Nasopharyngitis [Unknown]
  - Rhinorrhoea [Unknown]
